FAERS Safety Report 16737960 (Version 1)
Quarter: 2019Q3

REPORT INFORMATION
  Report Type: Spontaneous
  Country: GB (occurrence: GB)
  Receive Date: 20190824
  Receipt Date: 20190824
  Transmission Date: 20191005
  Serious: Yes (Other)
  Sender: FDA-Public Use
  Company Number: GB-TEVA-2019-GB-1096109

PATIENT
  Age: 59 Year
  Sex: Female
  Weight: 99 kg

DRUGS (15)
  1. ZEROBASE [Concomitant]
     Active Substance: MINERAL OIL\PARAFFIN
     Dosage: APPLY TO DRY AREAS 3-4 TIMES DAILY
     Dates: start: 20190710
  2. MOMETASONE [Concomitant]
     Active Substance: MOMETASONE
     Dosage: APPLY DAILY
     Route: 065
     Dates: start: 20190611, end: 20190709
  3. HYDROCORTISONE. [Concomitant]
     Active Substance: HYDROCORTISONE
     Dosage: APPLY
     Dates: start: 20190704
  4. TERBINAFINE. [Concomitant]
     Active Substance: TERBINAFINE
     Dosage: 1 DOSAGE FORM FOR EVERY 1 DAYS
     Dates: start: 20190704
  5. DIPYRIDAMOLE. [Concomitant]
     Active Substance: DIPYRIDAMOLE
     Dosage: 2 DOSAGE FORM FOR EVERY 1 DAYS
     Dates: start: 20190107
  6. SIMVASTATIN. [Concomitant]
     Active Substance: SIMVASTATIN
     Dosage: 1 DOSAGE FORM FRO EVERY 1 DAYS
     Dates: start: 20190107
  7. BENDROFLUMETHIAZIDE [Concomitant]
     Active Substance: BENDROFLUMETHIAZIDE
     Dosage: EACH MORNING
     Route: 065
     Dates: start: 20190107
  8. CONOTRANE [Concomitant]
     Dosage: 1ST LINE BARRIER CREAM. APPLY.
     Route: 065
     Dates: start: 20190704
  9. IRBESARTAN. [Concomitant]
     Active Substance: IRBESARTAN
     Dosage: 1 DOSAGE FORM FOR EVERY 1 DAYS
     Dates: start: 20190107
  10. CETIRIZINE [Concomitant]
     Active Substance: CETIRIZINE HYDROCHLORIDE
     Dosage: 1 DOSAGE FORM FOR EVERY 1 DAYS
     Dates: start: 20190710
  11. THIAMINE. [Concomitant]
     Active Substance: THIAMINE
     Dosage: 1 DOSAGE FORM FOR EVERY 1 DAYS
     Dates: start: 20190107
  12. HYDROXOCOBALAMIN [Concomitant]
     Active Substance: HYDROXOCOBALAMIN
     Dosage: MAINTENANCE: (FOR PRACTICE ADM...
     Dates: start: 20190430
  13. ROZEX (METRONIDAZOLE) [Concomitant]
     Active Substance: METRONIDAZOLE
     Dosage: APPLY
     Dates: start: 20190107
  14. ACETYLSALICYLIC ACID [Concomitant]
     Active Substance: ASPIRIN
     Dosage: 1 DOSAGE FORM FOR EVERY 1 DAYS
     Dates: start: 20190107
  15. AMOXICILLIN. [Suspect]
     Active Substance: AMOXICILLIN
     Dosage: 500 MILLIGRAM
     Dates: end: 20190705

REACTIONS (2)
  - Pruritus [Recovering/Resolving]
  - Rash macular [Recovering/Resolving]

NARRATIVE: CASE EVENT DATE: 20190705
